FAERS Safety Report 4811391-1 (Version None)
Quarter: 2005Q4

REPORT INFORMATION
  Report Type: 
  Country: None (occurrence: None)
  Receive Date: 20051027
  Receipt Date: 20051007
  Transmission Date: 20060501
  Serious: Yes (Hospitalization, Other)
  Sender: FDA-Public Use
  Company Number: PHBS2005JP14719

PATIENT
  Age: 43 Year
  Sex: Male

DRUGS (7)
  1. STARSIS [Suspect]
     Indication: DIABETES MELLITUS NON-INSULIN-DEPENDENT
     Dosage: 15 MG, QD
     Route: 048
     Dates: start: 20050930, end: 20050930
  2. STARSIS [Suspect]
     Dosage: 15 MG, QD
     Route: 048
     Dates: start: 20051003, end: 20051003
  3. ARTIST [Concomitant]
     Dosage: 1.25 MG, UNK
     Dates: start: 20050916, end: 20050927
  4. ARTIST [Concomitant]
     Dosage: 2.5 MG, UNK
     Dates: start: 20050928
  5. FRANDOL [Concomitant]
     Dosage: 2 DF, UNK
     Route: 048
     Dates: start: 20051001
  6. TORSEMIDE [Concomitant]
     Dosage: 4 MG, UNK
     Dates: start: 20051001
  7. ASPIRIN [Concomitant]
     Dosage: 100 MG, UNK
     Dates: start: 20050916

REACTIONS (9)
  - BLOOD PRESSURE INCREASED [None]
  - CARDIAC FAILURE [None]
  - CARDIOMEGALY [None]
  - CHEST PAIN [None]
  - FEELING ABNORMAL [None]
  - HEART RATE INCREASED [None]
  - OXYGEN SATURATION DECREASED [None]
  - PULMONARY CONGESTION [None]
  - VENTRICULAR EXTRASYSTOLES [None]
